FAERS Safety Report 7354200-1 (Version None)
Quarter: 2011Q1

REPORT INFORMATION
  Report Type: 
  Country: None (occurrence: None)
  Receive Date: 20110316
  Receipt Date: 20110307
  Transmission Date: 20110831
  Serious: No
  Sender: FDA-Public Use
  Company Number: US-BIOGENIDEC-2010BI008202

PATIENT
  Age: 55 Year
  Sex: Female

DRUGS (3)
  1. TYLENOL [Concomitant]
     Indication: PROPHYLAXIS
  2. TYSABRI [Suspect]
     Indication: MULTIPLE SCLEROSIS
     Route: 042
     Dates: start: 20090923, end: 20100311
  3. BENADRYL [Concomitant]
     Indication: PROPHYLAXIS
     Dates: start: 20090923

REACTIONS (1)
  - DRUG SPECIFIC ANTIBODY PRESENT [None]
